FAERS Safety Report 16706978 (Version 1)
Quarter: 2019Q3

REPORT INFORMATION
  Report Type: Spontaneous
  Country: JP (occurrence: JP)
  Receive Date: 20190815
  Receipt Date: 20190815
  Transmission Date: 20191004
  Serious: Yes (Hospitalization, Other)
  Sender: FDA-Public Use
  Company Number: JP-GILEAD-2019-0416020

PATIENT
  Sex: Female
  Weight: 56 kg

DRUGS (11)
  1. URSO 1A PHARMA [Concomitant]
  2. PROGRAF [Concomitant]
     Active Substance: TACROLIMUS\TACROLIMUS ANHYDROUS
  3. NEXIUM 1-2-3 [Concomitant]
     Active Substance: AMOXICILLIN\CLARITHROMYCIN\ESOMEPRAZOLE
  4. LAGNOS [Concomitant]
  5. EPCLUSA [Suspect]
     Active Substance: SOFOSBUVIR\VELPATASVIR
     Indication: HEPATITIS C
     Dosage: UNK
     Route: 065
  6. FUROSEMIDE. [Concomitant]
     Active Substance: FUROSEMIDE
  7. HEPAACT [Concomitant]
  8. IRBESARTAN. [Concomitant]
     Active Substance: IRBESARTAN
  9. AMINOLEBAN [Concomitant]
     Active Substance: AMINO ACIDS
  10. FEBURIC [Concomitant]
     Active Substance: FEBUXOSTAT
  11. EPCLUSA [Suspect]
     Active Substance: SOFOSBUVIR\VELPATASVIR
     Indication: HEPATIC CIRRHOSIS

REACTIONS (1)
  - Cerebral haemorrhage [Unknown]
